FAERS Safety Report 12462354 (Version 3)
Quarter: 2016Q4

REPORT INFORMATION
  Report Type: Report from Study
  Country: BR (occurrence: BR)
  Receive Date: 20160613
  Receipt Date: 20161219
  Transmission Date: 20170207
  Serious: Yes (Other)
  Sender: FDA-Public Use
  Company Number: BR-ROCHE-1773366

PATIENT
  Age: 38 Year
  Sex: Male

DRUGS (9)
  1. MONTELAIR [Concomitant]
     Active Substance: MONTELUKAST SODIUM
     Indication: ASTHMA
     Dosage: 2 DF, QD, 3 YEARS AGO
     Route: 048
     Dates: start: 201511
  2. XOLAIR [Suspect]
     Active Substance: OMALIZUMAB
     Indication: ASTHMA
     Dosage: 450 MG, BIW
     Route: 058
     Dates: start: 20151112
  3. XOLAIR [Suspect]
     Active Substance: OMALIZUMAB
     Dosage: 150 MG, UNK (03 AMPOULES EVERY DAY)
     Route: 058
     Dates: start: 201604
  4. FORASEQ [Concomitant]
     Active Substance: BUDESONIDE\FORMOTEROL FUMARATE
     Indication: ASTHMA
     Dosage: 10 DF, QD (5 OF EACH TREATMENT), 8 YEARS AGO
     Route: 055
     Dates: start: 2005
  5. XOLAIR [Suspect]
     Active Substance: OMALIZUMAB
     Dosage: UNK
     Route: 058
     Dates: start: 20160601
  6. XOLAIR [Suspect]
     Active Substance: OMALIZUMAB
     Dosage: UNK
     Route: 058
     Dates: start: 20160126
  7. LOSARTAN. [Concomitant]
     Active Substance: LOSARTAN
     Indication: HYPERTENSION
     Dosage: 2 DF, QD
     Route: 048
  8. XOLAIR [Suspect]
     Active Substance: OMALIZUMAB
     Dosage: UNK
     Route: 058
     Dates: start: 20161122
  9. DOMPERIDONE [Concomitant]
     Active Substance: DOMPERIDONE
     Indication: DYSPEPSIA
     Dosage: 2 DF, QD, 3 YEARS AGO
     Route: 048

REACTIONS (15)
  - Cellulitis [Recovered/Resolved]
  - Dengue fever [Recovered/Resolved]
  - Vision blurred [Recovered/Resolved]
  - Eye colour change [Unknown]
  - Sepsis [Recovered/Resolved]
  - Retching [Recovered/Resolved]
  - Nail infection [Recovered/Resolved]
  - Chikungunya virus infection [Unknown]
  - Dizziness [Recovered/Resolved]
  - Nausea [Recovered/Resolved]
  - Zika virus infection [Recovering/Resolving]
  - Malaise [Unknown]
  - Nail injury [Recovered/Resolved]
  - Vision blurred [Recovered/Resolved]
  - Bone pain [Recovered/Resolved]

NARRATIVE: CASE EVENT DATE: 201512
